FAERS Safety Report 16868035 (Version 1)
Quarter: 2019Q3

REPORT INFORMATION
  Report Type: Spontaneous
  Country: BR (occurrence: BR)
  Receive Date: 20190930
  Receipt Date: 20190930
  Transmission Date: 20191005
  Serious: Yes (Hospitalization)
  Sender: FDA-Public Use
  Company Number: BR-SA-2019SA265145

PATIENT
  Age: 73 Year
  Sex: Female
  Weight: 59 kg

DRUGS (8)
  1. LANTUS [Suspect]
     Active Substance: INSULIN GLARGINE
     Indication: TYPE 2 DIABETES MELLITUS
     Dosage: 40 IU, QD,BY MORNING
     Route: 058
  2. METFORMIN [Concomitant]
     Active Substance: METFORMIN HYDROCHLORIDE
     Indication: TYPE 2 DIABETES MELLITUS
     Dosage: 3 DF,3 TABLETS DURING THE DAY
     Route: 048
  3. SUSTRATE [Concomitant]
     Active Substance: PROPATYL NITRATE
     Indication: CARDIAC DISORDER
     Dosage: 3 DF, QD,3 TABLETS PER DAY
     Route: 048
     Dates: start: 2015
  4. AAS [Concomitant]
     Active Substance: ASPIRIN
     Indication: CARDIAC DISORDER
     Dosage: 1 DF, QD,1 TABLET PER DAY, BY MORNING
     Route: 048
     Dates: start: 2015
  5. SELOZOK [Concomitant]
     Active Substance: METOPROLOL SUCCINATE
     Indication: CARDIAC DISORDER
     Dosage: 1 DF, QD,1 TABLET PER DAY, BY MORNING
     Route: 048
     Dates: start: 2015
  6. SIMVASTATIN. [Concomitant]
     Active Substance: SIMVASTATIN
     Indication: CARDIAC DISORDER
     Dosage: 2 DF, BID,2 TABLETS PER DAY, AT MORNING AND AT NIGHT
     Route: 048
     Dates: start: 2015
  7. TICLOPIDINE [Concomitant]
     Active Substance: TICLOPIDINE
     Indication: CARDIAC DISORDER
     Dosage: 2 DF, QD,2 TABLETS DURING THE DAY
     Route: 048
     Dates: start: 2015
  8. LOSARTAN [LOSARTAN POTASSIUM] [Concomitant]
     Dosage: 2 DF, QD,2 TABLETS DURING THE DAY
     Route: 048

REACTIONS (3)
  - Malaise [Unknown]
  - Product dose omission [Unknown]
  - Blood glucose increased [Recovered/Resolved]

NARRATIVE: CASE EVENT DATE: 20190919
